FAERS Safety Report 24836261 (Version 2)
Quarter: 2025Q1

REPORT INFORMATION
  Report Type: Report from Study
  Country: US (occurrence: US)
  Receive Date: 20250113
  Receipt Date: 20250219
  Transmission Date: 20250409
  Serious: Yes (Hospitalization, Other)
  Sender: SUNOVION
  Company Number: US-MYOVANT SCIENCES GMBH-2024MYSCI0600981

PATIENT

DRUGS (6)
  1. ORGOVYX [Suspect]
     Active Substance: RELUGOLIX
     Indication: Prostate cancer
     Dosage: 360 MILLIGRAM, ONE TIME DOSE
     Route: 048
     Dates: start: 20240614, end: 20240615
  2. ORGOVYX [Suspect]
     Active Substance: RELUGOLIX
     Dosage: 120 MILLIGRAM, QD
     Route: 048
     Dates: start: 20240615
  3. ORGOVYX [Suspect]
     Active Substance: RELUGOLIX
     Route: 048
     Dates: end: 20240614
  4. ORGOVYX [Suspect]
     Active Substance: RELUGOLIX
     Route: 048
  5. ORGOVYX [Suspect]
     Active Substance: RELUGOLIX
     Route: 048
  6. ORGOVYX [Suspect]
     Active Substance: RELUGOLIX
     Route: 048

REACTIONS (10)
  - Lower limb fracture [Unknown]
  - Prostatic operation [Unknown]
  - Pain [Unknown]
  - Prostatic specific antigen decreased [Unknown]
  - Gait disturbance [Unknown]
  - Feeling abnormal [Unknown]
  - Fatigue [Unknown]
  - Hot flush [Unknown]
  - Myalgia [Unknown]
  - Arthralgia [Unknown]
